FAERS Safety Report 13743542 (Version 1)
Quarter: 2017Q3

REPORT INFORMATION
  Report Type: Report from Study
  Country: US (occurrence: US)
  Receive Date: 20170711
  Receipt Date: 20170711
  Transmission Date: 20171127
  Serious: No
  Sender: FDA-Public Use
  Company Number: GXBR2017US002116

PATIENT
  Sex: Female
  Weight: 79.46 kg

DRUGS (1)
  1. OMNITROPE [Suspect]
     Active Substance: SOMATROPIN
     Indication: HYPOPITUITARISM
     Dosage: 0.6 MG, QD
     Route: 065
     Dates: start: 20170616

REACTIONS (4)
  - Hypoaesthesia [Unknown]
  - Arthralgia [Unknown]
  - Dizziness [Unknown]
  - Dry mouth [Unknown]
